FAERS Safety Report 19246260 (Version 1)
Quarter: 2021Q2

REPORT INFORMATION
  Report Type: Spontaneous
  Country: GB (occurrence: GB)
  Receive Date: 20210512
  Receipt Date: 20210512
  Transmission Date: 20210717
  Serious: Yes (Hospitalization)
  Sender: FDA-Public Use
  Company Number: GB-TEVA-2021-GB-1909749

PATIENT
  Age: 54 Year
  Sex: Female
  Weight: 120 kg

DRUGS (20)
  1. LYRINEL XL [Concomitant]
     Active Substance: OXYBUTYNIN
  2. COCODAMOL [Concomitant]
     Active Substance: ACETAMINOPHEN\CODEINE PHOSPHATE
  3. MOVELAT [Concomitant]
  4. OMEPRAZOLE. [Concomitant]
     Active Substance: OMEPRAZOLE
  5. CHLORHEXIDINE GLUCONATE. [Concomitant]
     Active Substance: CHLORHEXIDINE GLUCONATE
  6. PREGABALIN. [Concomitant]
     Active Substance: PREGABALIN
  7. ZOMORPH [Concomitant]
     Active Substance: MORPHINE SULFATE
  8. IBUPROFEN. [Suspect]
     Active Substance: IBUPROFEN
     Indication: PAIN
     Dosage: 400MG TDS ? QDS
     Route: 048
     Dates: start: 202102, end: 20210426
  9. HYOSCINE HYDROBROMIDE [Concomitant]
     Active Substance: SCOPOLAMINE HYDROBROMIDE
  10. METFORMIN [Concomitant]
     Active Substance: METFORMIN HYDROCHLORIDE
  11. PARACETAMOL [Concomitant]
     Active Substance: ACETAMINOPHEN
  12. PRIADEL [Interacting]
     Active Substance: LITHIUM
     Indication: BIPOLAR DISORDER
     Dosage: 600 MILLIGRAM DAILY; AT NIGHT
     Route: 048
  13. SALBUTAMOL [Concomitant]
     Active Substance: ALBUTEROL
  14. CANDESARTAN CILEXETIL. [Interacting]
     Active Substance: CANDESARTAN CILEXETIL
     Route: 065
  15. LANSOPRAZOLE. [Concomitant]
     Active Substance: LANSOPRAZOLE
  16. SEMAGLUTIDE [Concomitant]
     Active Substance: SEMAGLUTIDE
  17. DUORESP SPIROMAX [Concomitant]
     Active Substance: BUDESONIDE\FORMOTEROL
  18. GAVISCON ADVANCE [Concomitant]
     Active Substance: POTASSIUM BICARBONATE\SODIUM ALGINATE
  19. LAMOTRIGINE. [Concomitant]
     Active Substance: LAMOTRIGINE
  20. METOCLOPRAMIDE. [Concomitant]
     Active Substance: METOCLOPRAMIDE

REACTIONS (5)
  - Toxicity to various agents [Not Recovered/Not Resolved]
  - Drug interaction [Unknown]
  - Diarrhoea [Unknown]
  - Vomiting [Unknown]
  - Confusional state [Unknown]

NARRATIVE: CASE EVENT DATE: 20210426
